FAERS Safety Report 23486104 (Version 1)
Quarter: 2024Q1

REPORT INFORMATION
  Report Type: Spontaneous
  Country: US (occurrence: None)
  Receive Date: 20240206
  Receipt Date: 20240206
  Transmission Date: 20240410
  Serious: No
  Sender: FDA-Public Use
  Company Number: 2024A029588

PATIENT
  Age: 79 Year
  Sex: Female
  Weight: 99.8 kg

DRUGS (3)
  1. ESOMEPRAZOLE [Suspect]
     Active Substance: ESOMEPRAZOLE
     Indication: Gastrooesophageal reflux disease
     Dosage: 20 MG, QD
     Dates: start: 2020
  2. TUMS [Suspect]
     Active Substance: CALCIUM CARBONATE
     Indication: Thyroid disorder
     Dosage: UNK
  3. TUMS [Suspect]
     Active Substance: CALCIUM CARBONATE
     Indication: Mineral supplementation
     Dosage: UNK

REACTIONS (5)
  - Chest pain [Recovered/Resolved]
  - Abdominal pain upper [Recovered/Resolved]
  - Drug ineffective for unapproved indication [Unknown]
  - Product use in unapproved indication [Unknown]
  - Drug ineffective [Unknown]

NARRATIVE: CASE EVENT DATE: 20220602
